FAERS Safety Report 18604515 (Version 1)
Quarter: 2020Q4

REPORT INFORMATION
  Report Type: Spontaneous
  Country: IT (occurrence: IT)
  Receive Date: 20201211
  Receipt Date: 20201211
  Transmission Date: 20210114
  Serious: Yes (Hospitalization, Other)
  Sender: FDA-Public Use
  Company Number: IT-ACCORD-210305

PATIENT
  Age: 13 Year
  Sex: Male
  Weight: 69 kg

DRUGS (14)
  1. EMEND [Concomitant]
     Active Substance: APREPITANT
     Route: 048
  2. TRIMETON [Concomitant]
     Active Substance: CHLORPHENIRAMINE MALEATE
     Route: 042
  3. DOXORUBICIN [Suspect]
     Active Substance: DOXORUBICIN
     Indication: OSTEOSARCOMA
     Route: 042
     Dates: start: 20200927, end: 20200928
  4. DOXORUBICIN [Suspect]
     Active Substance: DOXORUBICIN
     Indication: OSTEOSARCOMA
     Route: 042
     Dates: start: 20200824, end: 20200824
  5. LEDERFOLIN [Concomitant]
     Active Substance: LEUCOVORIN CALCIUM
     Route: 042
  6. ANTRA [Concomitant]
     Active Substance: OMEPRAZOLE
  7. CISPLATIN. [Suspect]
     Active Substance: CISPLATIN
     Indication: OSTEOSARCOMA
     Route: 042
     Dates: start: 20200822, end: 20200823
  8. DECADRON [Concomitant]
     Active Substance: DEXAMETHASONE
  9. PAXABEL [Concomitant]
     Route: 048
  10. ZOFRAN [Concomitant]
     Active Substance: ONDANSETRON HYDROCHLORIDE
     Route: 042
  11. EMEND [Concomitant]
     Active Substance: APREPITANT
     Route: 048
  12. CISPLATIN. [Suspect]
     Active Substance: CISPLATIN
     Indication: OSTEOSARCOMA
     Route: 042
     Dates: start: 20200927, end: 20200928
  13. DOXORUBICIN [Suspect]
     Active Substance: DOXORUBICIN
     Indication: OSTEOSARCOMA
     Route: 042
     Dates: start: 20200825, end: 20200825
  14. CISPLATIN. [Suspect]
     Active Substance: CISPLATIN
     Indication: OSTEOSARCOMA
     Route: 042
     Dates: start: 20200925, end: 20200926

REACTIONS (7)
  - Off label use [Unknown]
  - Febrile bone marrow aplasia [Recovering/Resolving]
  - Nausea [Recovered/Resolved]
  - Pharyngitis [Recovering/Resolving]
  - Mucosal inflammation [Recovering/Resolving]
  - Thrombocytopenia [Recovering/Resolving]
  - Pyrexia [Recovering/Resolving]

NARRATIVE: CASE EVENT DATE: 20200825
